FAERS Safety Report 22115471 (Version 1)
Quarter: 2023Q1

REPORT INFORMATION
  Report Type: Spontaneous
  Country: US (occurrence: None)
  Receive Date: 20230318
  Receipt Date: 20230318
  Transmission Date: 20230418
  Serious: Yes (Death)
  Sender: FDA-Public Use
  Company Number: None

PATIENT
  Age: 76 Year
  Sex: Male

DRUGS (1)
  1. PROMACTA [Suspect]
     Active Substance: ELTROMBOPAG OLAMINE
     Indication: Thrombocytopenia
     Dosage: 25MG QD ORAL?
     Route: 048
     Dates: start: 20221206, end: 20230115

REACTIONS (5)
  - Pancytopenia [None]
  - Red blood cell transfusion [None]
  - Platelet transfusion [None]
  - Small intestinal haemorrhage [None]
  - Dieulafoy^s vascular malformation [None]

NARRATIVE: CASE EVENT DATE: 20230116
